FAERS Safety Report 12521049 (Version 4)
Quarter: 2016Q3

REPORT INFORMATION
  Report Type: Report from Study
  Country: AT (occurrence: AT)
  Receive Date: 20160701
  Receipt Date: 20160928
  Transmission Date: 20161109
  Serious: Yes (Hospitalization, Other)
  Sender: FDA-Public Use
  Company Number: AT-INCYTE CORPORATION-2015IN000558

PATIENT
  Age: 74 Year
  Sex: Male
  Weight: 74 kg

DRUGS (15)
  1. DIGIMERCK [Concomitant]
     Active Substance: DIGITOXIN
     Indication: PRODUCT USED FOR UNKNOWN INDICATION
     Dosage: UNKNOWN
     Route: 048
  2. EXJADE [Concomitant]
     Active Substance: DEFERASIROX
  3. EXJADE [Concomitant]
     Active Substance: DEFERASIROX
  4. OLEOVIT D3 [Concomitant]
     Active Substance: CHOLECALCIFEROL
  5. JAKAFI [Suspect]
     Active Substance: RUXOLITINIB
     Indication: MYELOFIBROSIS
     Dosage: 30 MG, QD
     Route: 048
     Dates: start: 20121009, end: 20130120
  6. JAKAFI [Suspect]
     Active Substance: RUXOLITINIB
     Dosage: 15 MG, QD
     Route: 048
     Dates: start: 20130924, end: 20141026
  7. JAKAFI [Suspect]
     Active Substance: RUXOLITINIB
     Dosage: 5 MG, QD
     Route: 048
     Dates: start: 20160309, end: 20160309
  8. DIGIMERCK [Concomitant]
     Active Substance: DIGITOXIN
     Dosage: 0.07 MG, QD
  9. JAKAFI [Suspect]
     Active Substance: RUXOLITINIB
     Dosage: 20 OT, QD
     Route: 048
     Dates: start: 20130121, end: 20130514
  10. JAKAFI [Suspect]
     Active Substance: RUXOLITINIB
     Dosage: 15 MG, QD
     Route: 048
     Dates: start: 20130515, end: 20130923
  11. EXJADE [Concomitant]
     Active Substance: DEFERASIROX
     Indication: PRODUCT USED FOR UNKNOWN INDICATION
     Dosage: 250 MG, BID
     Route: 048
  12. DIGIMERCK [Concomitant]
     Active Substance: DIGITOXIN
     Dosage: 0.07 MG, QD
  13. JAKAFI [Suspect]
     Active Substance: RUXOLITINIB
     Dosage: 10 MG, QD
     Route: 048
     Dates: start: 20141027, end: 20160308
  14. OLEOVIT D3 [Concomitant]
     Active Substance: CHOLECALCIFEROL
     Indication: PRODUCT USED FOR UNKNOWN INDICATION
     Dosage: 40 GTT, QD
     Route: 048
  15. OLEOVIT D3 [Concomitant]
     Active Substance: CHOLECALCIFEROL

REACTIONS (16)
  - Pulmonary hypertension [Recovered/Resolved]
  - Anaemia [Unknown]
  - Myelodysplastic syndrome [Unknown]
  - Chronic obstructive pulmonary disease [Unknown]
  - Essential hypertension [Unknown]
  - Hypoxia [Unknown]
  - Pulmonary arterial hypertension [Unknown]
  - Myelofibrosis [Unknown]
  - Nasopharyngitis [Recovered/Resolved]
  - Splenomegaly [Unknown]
  - Atrial fibrillation [Unknown]
  - Lung disorder [Unknown]
  - Iron metabolism disorder [Unknown]
  - Hyperuricaemia [Unknown]
  - Cardiovascular disorder [Unknown]
  - Haematoma [Not Recovered/Not Resolved]

NARRATIVE: CASE EVENT DATE: 20131127
